FAERS Safety Report 7956503-6 (Version None)
Quarter: 2011Q4

REPORT INFORMATION
  Report Type: 
  Country: None (occurrence: None)
  Receive Date: 20111205
  Receipt Date: 20111122
  Transmission Date: 20120403
  Serious: Yes (Hospitalization, Other)
  Sender: FDA-Public Use
  Company Number: FR-JNJFOC-20111011353

PATIENT
  Sex: Male

DRUGS (12)
  1. KETOPROFEN [Concomitant]
     Route: 042
     Dates: start: 20111018, end: 20111018
  2. METOCLOPRAMIDE [Concomitant]
  3. ACETAMINOPHEN [Concomitant]
     Dates: start: 20111018, end: 20111021
  4. ACETAMINOPHEN [Concomitant]
  5. PANTOPRAZOLE [Concomitant]
     Dates: start: 20111018, end: 20111023
  6. XARELTO [Suspect]
     Indication: KNEE ARTHROPLASTY
     Route: 048
     Dates: start: 20111018, end: 20111019
  7. NEFOPAM [Concomitant]
  8. MORPHINE SULFATE [Concomitant]
     Dates: start: 20111018, end: 20111021
  9. NAPROXEN [Interacting]
     Indication: ILL-DEFINED DISORDER
     Dates: start: 20111018, end: 20111020
  10. IRBESARTAN [Concomitant]
     Dates: start: 20111018, end: 20111020
  11. DUPHALAC [Concomitant]
     Dates: start: 20111018
  12. DOMPERIDONE [Concomitant]
     Dates: start: 20111018

REACTIONS (5)
  - KAOLIN CEPHALIN CLOTTING TIME PROLONGED [None]
  - PROTHROMBIN TIME PROLONGED [None]
  - INCISION SITE HAEMORRHAGE [None]
  - HAEMORRHAGIC ANAEMIA [None]
  - DRUG INTERACTION [None]
